FAERS Safety Report 7551934-0 (Version None)
Quarter: 2011Q2

REPORT INFORMATION
  Report Type: 
  Country: None (occurrence: None)
  Receive Date: 20110616
  Receipt Date: 20110608
  Transmission Date: 20111010
  Serious: Yes (Hospitalization)
  Sender: FDA-Public Use
  Company Number: US-ABBOTT-11P-163-0729273-00

PATIENT
  Sex: Female
  Weight: 83.082 kg

DRUGS (12)
  1. SYNTHROID [Concomitant]
     Indication: HYPOTHYROIDISM
  2. SUPER B COMPLEX WITH CALCIUM [Concomitant]
     Indication: VITAMIN SUPPLEMENTATION
  3. VITAMIN D [Concomitant]
     Indication: VITAMIN SUPPLEMENTATION
  4. BIOTIN [Concomitant]
     Indication: PRODUCT USED FOR UNKNOWN INDICATION
  5. DEPAKOTE ER [Suspect]
     Indication: CONVULSION
     Route: 048
     Dates: start: 19900101
  6. AZULFIDINE [Concomitant]
     Indication: DIARRHOEA
  7. LOMOTIL [Concomitant]
     Indication: DIARRHOEA
  8. PANTOPRAZOLE [Concomitant]
     Indication: GASTROOESOPHAGEAL REFLUX DISEASE
  9. ENABLEX [Concomitant]
     Indication: URINARY INCONTINENCE
  10. LEXAPRO [Concomitant]
     Indication: DEPRESSION
  11. ACTONEL [Concomitant]
     Indication: OSTEOPOROSIS
  12. BIOTIN FORTE WITH ZINC [Concomitant]
     Indication: VITAMIN SUPPLEMENTATION

REACTIONS (3)
  - MEDICATION RESIDUE [None]
  - DIARRHOEA [None]
  - COLITIS ULCERATIVE [None]
